FAERS Safety Report 16127209 (Version 2)
Quarter: 2019Q1

REPORT INFORMATION
  Report Type: Spontaneous
  Country: NO (occurrence: NO)
  Receive Date: 20190328
  Receipt Date: 20190330
  Transmission Date: 20190418
  Serious: Yes (Other)
  Sender: FDA-Public Use
  Company Number: PHHY2019NO066026

PATIENT
  Age: 14 Year
  Sex: Male

DRUGS (1)
  1. METHOTREXATE. [Suspect]
     Active Substance: METHOTREXATE
     Indication: ACUTE LYMPHOCYTIC LEUKAEMIA
     Dosage: 240 MG, UNK
     Route: 037

REACTIONS (7)
  - Confusional state [Unknown]
  - Disorientation [Unknown]
  - Medication error [Unknown]
  - Overdose [Unknown]
  - Product preparation error [Unknown]
  - Seizure [Unknown]
  - Neurotoxicity [Unknown]
